FAERS Safety Report 10787357 (Version 3)
Quarter: 2015Q1

REPORT INFORMATION
  Report Type: Spontaneous
  Country: JP (occurrence: JP)
  Receive Date: 20150212
  Receipt Date: 20150224
  Transmission Date: 20150721
  Serious: Yes (Hospitalization, Other)
  Sender: FDA-Public Use
  Company Number: JP-AMGEN-JPNSP2015010392

PATIENT
  Age: 66 Year
  Sex: Male
  Weight: 48 kg

DRUGS (14)
  1. LINOLOSAL [Concomitant]
     Indication: SCIATICA
     Dosage: 2 MG, 1X/DAY
     Route: 008
     Dates: start: 20120106, end: 20150128
  2. RANITAC [Concomitant]
     Indication: GASTRITIS
     Dosage: 150 MG, 1X/DAY
     Route: 048
     Dates: start: 20120106, end: 20150128
  3. VOLTAREN [Concomitant]
     Active Substance: DICLOFENAC SODIUM
     Indication: RHEUMATOID VASCULITIS
     Dosage: 50 MG, 1X/DAY
     Route: 054
     Dates: start: 20120106, end: 20150128
  4. ENBREL [Suspect]
     Active Substance: ETANERCEPT
     Dosage: 50 MG ONCE IN 2 WEEKS
     Route: 058
     Dates: start: 20141202, end: 20150119
  5. SUVENYL [Concomitant]
     Active Substance: HYALURONATE SODIUM
     Indication: RHEUMATOID VASCULITIS
     Dosage: 25 MG, ONCE WEEKLY
     Route: 014
     Dates: start: 20120106, end: 20150128
  6. PROGRAF [Concomitant]
     Active Substance: TACROLIMUS\TACROLIMUS ANHYDROUS
     Indication: RHEUMATOID VASCULITIS
     Dosage: 1 MG, 3X/DAY
     Route: 048
     Dates: start: 20120106, end: 20150128
  7. NINJIN-TO [Concomitant]
     Active Substance: UNSPECIFIED INGREDIENT
     Indication: RHEUMATOID VASCULITIS
     Dosage: 2.5 G, 3X/DAY
     Route: 048
     Dates: start: 20120106, end: 20150128
  8. ENBREL [Suspect]
     Active Substance: ETANERCEPT
     Indication: RHEUMATOID VASCULITIS
     Dosage: 25 MG, WEEKLY
     Route: 058
     Dates: start: 20141118, end: 20141201
  9. XYLOCAINE [Concomitant]
     Active Substance: LIDOCAINE HYDROCHLORIDE
     Indication: SCIATICA
     Dosage: 5 ML, 1X/DAY
     Route: 008
     Dates: start: 20120106, end: 20150128
  10. GRIMAC [Concomitant]
     Indication: GASTRITIS
     Dosage: 0.67 G, 3X/DAY
     Route: 048
     Dates: start: 20120106, end: 20150128
  11. MIRIDACIN [Concomitant]
     Indication: RHEUMATOID VASCULITIS
     Dosage: 90 MG, 3X/DAY
     Route: 048
     Dates: start: 20120106, end: 20150128
  12. PREDNISOLONE. [Concomitant]
     Active Substance: PREDNISOLONE
     Indication: RHEUMATOID VASCULITIS
     Dosage: 1 MG, DAILY
     Route: 048
     Dates: start: 20120106, end: 20150128
  13. RECALBON                           /00454801/ [Concomitant]
     Indication: SCIATICA
     Dosage: 50 MG, 1X/DAY
     Route: 048
     Dates: start: 20120106, end: 20150128
  14. PREDONINE [Concomitant]
     Active Substance: PREDNISOLONE\PREDNISOLONE ACETATE\PREDNISOLONE SODIUM SUCCINATE
     Indication: RHEUMATOID VASCULITIS
     Dosage: 2.5 MG, DAILY
     Route: 048
     Dates: start: 20120106, end: 20150128

REACTIONS (5)
  - Cough [Unknown]
  - Condition aggravated [Unknown]
  - Arthralgia [Unknown]
  - Joint swelling [Unknown]
  - Pneumonia [Not Recovered/Not Resolved]

NARRATIVE: CASE EVENT DATE: 20150119
